FAERS Safety Report 7486727-6 (Version None)
Quarter: 2011Q2

REPORT INFORMATION
  Report Type: 
  Country: None (occurrence: None)
  Receive Date: 20110517
  Receipt Date: 20110509
  Transmission Date: 20111010
  Serious: Yes (Other)
  Sender: FDA-Public Use
  Company Number: IE-PFIZER INC-2011075744

PATIENT
  Age: 13 Year
  Sex: Female

DRUGS (10)
  1. CODEINE [Concomitant]
     Dosage: UNK
  2. NEURONTIN [Suspect]
     Indication: PAIN
     Dosage: 100 MG, 1X/DAY
     Route: 048
  3. ORAMORPH SR [Concomitant]
     Dosage: UNK
  4. CLONIDINE [Concomitant]
     Dosage: 13.5 MG, 4X/DAY
  5. ACETAMINOPHEN [Concomitant]
     Dosage: 800 MG, 4X/DAY/PRN
  6. LOSARTAN [Concomitant]
     Dosage: 6.25 MG, 1X/DAY
     Route: 048
  7. COD-LIVER OIL [Concomitant]
     Dosage: UNK
  8. NEURONTIN [Suspect]
     Dosage: 300 MG, 1X/DAY
     Route: 048
  9. IBUPROFEN [Concomitant]
     Dosage: UNK
     Dates: end: 20110325
  10. ZOFRAN [Concomitant]
     Dosage: 6 MG, 3X/DAY

REACTIONS (1)
  - HALLUCINATION, AUDITORY [None]
